FAERS Safety Report 9675720 (Version 2)
Quarter: 2013Q4

REPORT INFORMATION
  Report Type: Report from Study
  Country: US (occurrence: US)
  Receive Date: 20131107
  Receipt Date: 20131111
  Transmission Date: 20140711
  Serious: Yes (Hospitalization, Other)
  Sender: FDA-Public Use
  Company Number: US-ABBVIE-13P-163-1164287-00

PATIENT
  Age: 51 Year
  Sex: Female
  Weight: 51.3 kg

DRUGS (16)
  1. HUMIRA [Suspect]
     Indication: CROHN^S DISEASE
     Dosage: LOADING DOSE
     Dates: start: 20131012, end: 20131012
  2. HUMIRA [Suspect]
     Dosage: 80MG PRESCRIBED
     Dates: start: 20131026, end: 20131026
  3. VANCOMYCIN [Suspect]
     Indication: CLOSTRIDIUM DIFFICILE INFECTION
  4. PRISTIQ [Concomitant]
     Indication: DEPRESSION
     Route: 048
  5. ATORVASTATIN [Concomitant]
     Indication: BLOOD CHOLESTEROL INCREASED
  6. BABY ASPIRIN [Concomitant]
     Indication: BLOOD CHOLESTEROL INCREASED
     Route: 061
  7. DEXILANT [Concomitant]
     Indication: CROHN^S DISEASE
     Route: 048
  8. FAMOTIDINE [Concomitant]
     Indication: CROHN^S DISEASE
  9. NUCYNTA [Concomitant]
     Indication: PAIN
  10. FENTANYL [Concomitant]
     Indication: PAIN
     Route: 062
  11. FENTANYL [Concomitant]
     Route: 062
  12. RANITIDINE [Concomitant]
     Indication: PRODUCT USED FOR UNKNOWN INDICATION
     Route: 048
  13. MULTIVITAMIN [Concomitant]
     Indication: PRODUCT USED FOR UNKNOWN INDICATION
  14. VITAMIN D [Concomitant]
     Indication: PRODUCT USED FOR UNKNOWN INDICATION
  15. CALCIUM [Concomitant]
     Indication: PRODUCT USED FOR UNKNOWN INDICATION
  16. MIRALAX [Concomitant]
     Indication: PRODUCT USED FOR UNKNOWN INDICATION

REACTIONS (4)
  - Red man syndrome [Unknown]
  - Clostridium difficile infection [Recovered/Resolved]
  - Vaginal haemorrhage [Recovered/Resolved]
  - Endometrial hypertrophy [Not Recovered/Not Resolved]
